FAERS Safety Report 12964147 (Version 2)
Quarter: 2016Q4

REPORT INFORMATION
  Report Type: Report from Study
  Country: RU (occurrence: RU)
  Receive Date: 20161122
  Receipt Date: 20161206
  Transmission Date: 20170207
  Serious: Yes (Other)
  Sender: FDA-Public Use
  Company Number: PHHY2015RU064474

PATIENT
  Age: 65 Year
  Sex: Female

DRUGS (2)
  1. ANASTROZOLE. [Concomitant]
     Active Substance: ANASTROZOLE
     Indication: BREAST CANCER
     Dosage: 1 MG, UNK
     Route: 065
     Dates: start: 20140206, end: 20150504
  2. AFINITOR [Suspect]
     Active Substance: EVEROLIMUS
     Indication: BREAST CANCER
     Dosage: 10 MG, UNK
     Route: 048
     Dates: start: 20150210, end: 20150504

REACTIONS (3)
  - Mucosal haemorrhage [Recovered/Resolved]
  - Gingival swelling [Recovered/Resolved]
  - Periodontal disease [Recovered/Resolved]

NARRATIVE: CASE EVENT DATE: 20150503
